FAERS Safety Report 8131554-X (Version None)
Quarter: 2012Q1

REPORT INFORMATION
  Report Type: 
  Country: None (occurrence: None)
  Receive Date: 20120213
  Receipt Date: 20120206
  Transmission Date: 20120608
  Serious: Yes (Other)
  Sender: FDA-Public Use
  Company Number: IL-JNJFOC-20110406301

PATIENT
  Age: 85 Year
  Sex: Female

DRUGS (3)
  1. GALANTAMINE HYDROBROMIDE [Suspect]
     Indication: DEMENTIA ALZHEIMER'S TYPE
     Route: 048
  2. ANTIHYPERTENSIVES [Concomitant]
     Indication: HYPERTENSION
     Route: 065
  3. CHOLESTEROL LOWERING DRUG [Concomitant]
     Indication: BLOOD CHOLESTEROL DECREASED
     Route: 065

REACTIONS (1)
  - RENAL IMPAIRMENT [None]
